FAERS Safety Report 23870472 (Version 1)
Quarter: 2024Q2

REPORT INFORMATION
  Report Type: Report from Study
  Country: CA (occurrence: CA)
  Receive Date: 20240518
  Receipt Date: 20240518
  Transmission Date: 20240715
  Serious: Yes (Hospitalization)
  Sender: FDA-Public Use
  Company Number: CA-ABBVIE-5761770

PATIENT
  Sex: Female

DRUGS (1)
  1. SKYRIZI [Suspect]
     Active Substance: RISANKIZUMAB-RZAA
     Indication: Psoriasis
     Route: 058
     Dates: start: 20240327

REACTIONS (7)
  - Infection [Unknown]
  - Psoriasis [Unknown]
  - Fall [Unknown]
  - Cardiac failure [Unknown]
  - Sepsis [Unknown]
  - Hypervolaemia [Unknown]
  - Illness [Unknown]

NARRATIVE: CASE EVENT DATE: 20240101
